FAERS Safety Report 24699777 (Version 2)
Quarter: 2025Q1

REPORT INFORMATION
  Report Type: Spontaneous
  Country: JP (occurrence: JP)
  Receive Date: 20241205
  Receipt Date: 20250130
  Transmission Date: 20250409
  Serious: Yes (Other)
  Sender: BOEHRINGER INGELHEIM
  Company Number: JP-NBI-2024-BI-040175

PATIENT
  Age: 64 Year
  Sex: Female

DRUGS (5)
  1. OFEV [Suspect]
     Active Substance: NINTEDANIB
     Indication: Idiopathic pulmonary fibrosis
     Dates: start: 2020
  2. OFEV [Suspect]
     Active Substance: NINTEDANIB
     Dosage: IN THE MORNING AND EVENING.
  3. OFEV [Suspect]
     Active Substance: NINTEDANIB
     Dosage: IN THE EVENING.
  4. OFEV [Suspect]
     Active Substance: NINTEDANIB
     Dates: start: 202406, end: 20240714
  5. OFEV [Suspect]
     Active Substance: NINTEDANIB
     Dates: start: 20240715

REACTIONS (13)
  - Abdominal pain [Recovered/Resolved]
  - Cholelithiasis [Unknown]
  - Back pain [Recovered/Resolved]
  - Liver function test increased [Not Recovered/Not Resolved]
  - KL-6 increased [Recovering/Resolving]
  - Cough [Not Recovered/Not Resolved]
  - C-reactive protein increased [Not Recovered/Not Resolved]
  - Physical deconditioning [Not Recovered/Not Resolved]
  - Dyspnoea [Not Recovered/Not Resolved]
  - Dyspnoea [Not Recovered/Not Resolved]
  - Vomiting [Not Recovered/Not Resolved]
  - Liver function test increased [Recovered/Resolved]
  - Nausea [Not Recovered/Not Resolved]

NARRATIVE: CASE EVENT DATE: 20250120
